FAERS Safety Report 4288449-1 (Version None)
Quarter: 2004Q1

REPORT INFORMATION
  Report Type: 
  Country: None (occurrence: None)
  Receive Date: 20040204
  Receipt Date: 20031118
  Transmission Date: 20041129
  Serious: Yes (Hospitalization)
  Sender: FDA-Public Use
  Company Number: 2003S1000401

PATIENT
  Age: 50 Year
  Sex: Male

DRUGS (16)
  1. DOXORUBICIN HCL [Suspect]
     Indication: HEPATIC NEOPLASM MALIGNANT
     Dosage: 60 MG/^2; EVERY THREE WEEKS; INTRAVENOUS
     Route: 042
     Dates: start: 20030506, end: 20031028
  2. MILK OF MAGNESIA TAB [Concomitant]
  3. SENNA [Concomitant]
  4. ZESTRIL [Concomitant]
  5. MORPHINE [Concomitant]
  6. ASPIRIN [Concomitant]
  7. MULTI-VITAMINS [Concomitant]
  8. LACTULOSE [Concomitant]
  9. MAALOX [Concomitant]
  10. ATENOLOL [Concomitant]
  11. COMPAZINE [Concomitant]
  12. LASIX [Concomitant]
  13. SPIRONOLACTONE [Concomitant]
  14. ZOLOFT [Concomitant]
  15. DINETAB [Concomitant]
  16. COLACE [Concomitant]

REACTIONS (4)
  - CARDIAC FAILURE CONGESTIVE [None]
  - FEBRILE NEUTROPENIA [None]
  - HYPOTENSION [None]
  - WHITE BLOOD CELL COUNT INCREASED [None]
